FAERS Safety Report 22071058 (Version 1)
Quarter: 2023Q1

REPORT INFORMATION
  Report Type: Spontaneous
  Country: US (occurrence: None)
  Receive Date: 20230307
  Receipt Date: 20230307
  Transmission Date: 20230417
  Serious: Yes (Hospitalization)
  Sender: FDA-Public Use
  Company Number: None

PATIENT
  Age: 53 Year
  Sex: Female
  Weight: 127.3 kg

DRUGS (2)
  1. CLOZAPINE [Suspect]
     Active Substance: CLOZAPINE
     Indication: Schizoaffective disorder
     Dosage: FREQUENCY : DAILY;?
     Route: 048
  2. CLOZAPINE [Concomitant]
     Active Substance: CLOZAPINE

REACTIONS (12)
  - Constipation [None]
  - Nausea [None]
  - Abdominal pain [None]
  - Vomiting [None]
  - Dizziness [None]
  - Asthenia [None]
  - Hypotension [None]
  - Alanine aminotransferase increased [None]
  - Blood lactic acid increased [None]
  - White blood cell count increased [None]
  - Haemoglobin decreased [None]
  - Faecal vomiting [None]

NARRATIVE: CASE EVENT DATE: 20230207
